FAERS Safety Report 17528377 (Version 1)
Quarter: 2020Q1

REPORT INFORMATION
  Report Type: Spontaneous
  Country: US (occurrence: US)
  Receive Date: 20200312
  Receipt Date: 20200312
  Transmission Date: 20200409
  Serious: Yes (Hospitalization)
  Sender: FDA-Public Use
  Company Number: US-TEVA-2020-US-1196965

PATIENT
  Age: 14 Year
  Sex: Male

DRUGS (8)
  1. CITALOPRAM [Interacting]
     Active Substance: CITALOPRAM HYDROBROMIDE
     Indication: DEPRESSION
  2. DEXTROSE. [Concomitant]
     Active Substance: DEXTROSE
     Indication: INTENTIONAL OVERDOSE
     Dosage: DILUTED IN 1L OF DEXTROSE 5% IN WATER
     Route: 050
  3. ARIPIPRAZOLE. [Suspect]
     Active Substance: ARIPIPRAZOLE
     Indication: ANXIETY
     Dosage: PRESCRIBED DOSE 5 MG ONCE DAILY, HOWEVER HE INGESTED 20 TABLETS AT ONCE.
     Route: 048
  4. CITALOPRAM [Interacting]
     Active Substance: CITALOPRAM HYDROBROMIDE
     Indication: ANXIETY
     Route: 048
  5. ARIPIPRAZOLE. [Interacting]
     Active Substance: ARIPIPRAZOLE
     Indication: DEPRESSION
  6. SODIUM BICARBONATE. [Suspect]
     Active Substance: SODIUM BICARBONATE
     Indication: INTENTIONAL OVERDOSE
     Dosage: 1 L OF DEXTROSE 5% IN WATER RUN AT 1.5-2 TIMES MAINTENANCE
     Route: 050
  7. SODIUM BICARBONATE. [Suspect]
     Active Substance: SODIUM BICARBONATE
     Indication: INTENTIONAL OVERDOSE
     Dosage: BOLUS DOSE: 1 MEQ/KG
     Route: 065
  8. ARIPIPRAZOLE. [Interacting]
     Active Substance: ARIPIPRAZOLE
     Indication: NERVOUSNESS

REACTIONS (12)
  - Intentional overdose [Unknown]
  - Somnolence [Recovered/Resolved]
  - Bundle branch block left [Unknown]
  - Sinus tachycardia [Unknown]
  - Electrocardiogram QRS complex prolonged [Recovering/Resolving]
  - Dystonia [Recovered/Resolved]
  - Hypocalcaemia [Unknown]
  - Drug interaction [Unknown]
  - Electrocardiogram QT prolonged [Unknown]
  - Hypokalaemia [Unknown]
  - Hypomagnesaemia [Unknown]
  - Intentional product misuse [Unknown]
